FAERS Safety Report 5412147-1 (Version None)
Quarter: 2007Q3

REPORT INFORMATION
  Report Type: 
  Country: None (occurrence: None)
  Receive Date: 20070713
  Receipt Date: 20070511
  Transmission Date: 20080115
  Serious: No
  Sender: FDA-Public Use
  Company Number: 2007SP001753

PATIENT
  Age: 57 Year
  Sex: Male
  Weight: 88.4514 kg

DRUGS (2)
  1. LUNESTA [Suspect]
     Indication: INSOMNIA
     Dosage: 2 MG HS ORAL ; 4 MG PRN ORAL
     Route: 048
     Dates: start: 20050101, end: 20070501
  2. LUNESTA [Suspect]
     Indication: INSOMNIA
     Dosage: 2 MG HS ORAL ; 4 MG PRN ORAL
     Route: 048
     Dates: start: 20070401, end: 20070501

REACTIONS (2)
  - DRUG EFFECT DECREASED [None]
  - DYSGEUSIA [None]
